FAERS Safety Report 7476550-0 (Version None)
Quarter: 2011Q2

REPORT INFORMATION
  Report Type: 
  Country: None (occurrence: None)
  Receive Date: 20110512
  Receipt Date: 20110504
  Transmission Date: 20111010
  Serious: Yes (Other)
  Sender: FDA-Public Use
  Company Number: PHHY2011US38293

PATIENT
  Sex: Female

DRUGS (8)
  1. MEVACOR [Concomitant]
     Dosage: 20 MG,
  2. RECLAST [Suspect]
     Dosage: 5 MG, UNK
     Route: 042
  3. TOPAMAX [Concomitant]
  4. RECLAST [Suspect]
     Dosage: 5 MG, UNK
     Route: 042
  5. ZEGERID [Concomitant]
     Dosage: 40 MG,
  6. RECLAST [Suspect]
     Dosage: 5 MG, UNK
     Route: 042
  7. SYNTHROID [Concomitant]
  8. VITAMIN D [Concomitant]

REACTIONS (2)
  - FALL [None]
  - BRONCHITIS [None]
